FAERS Safety Report 11826954 (Version 10)
Quarter: 2017Q3

REPORT INFORMATION
  Report Type: Spontaneous
  Country: BR (occurrence: BR)
  Receive Date: 20151211
  Receipt Date: 20170929
  Transmission Date: 20171127
  Serious: Yes (Other)
  Sender: FDA-Public Use
  Company Number: BR-JNJFOC-20151209082

PATIENT
  Age: 19 Year
  Sex: Female

DRUGS (6)
  1. STELARA [Suspect]
     Active Substance: USTEKINUMAB
     Indication: PSORIASIS
     Route: 058
     Dates: start: 20150806
  2. PAMELOR [Concomitant]
     Active Substance: NORTRIPTYLINE HYDROCHLORIDE
     Route: 065
  3. STELARA [Suspect]
     Active Substance: USTEKINUMAB
     Indication: PSORIASIS
     Route: 058
  4. TOLREST [Concomitant]
     Active Substance: SERTRALINE HYDROCHLORIDE
     Route: 065
  5. FOLIC ACID. [Concomitant]
     Active Substance: FOLIC ACID
     Route: 065
  6. NEUTROFER [Concomitant]
     Active Substance: FERROUS BISGLYCINATE
     Route: 065

REACTIONS (14)
  - Ileus paralytic [Unknown]
  - Oligomenorrhoea [Unknown]
  - Alopecia [Unknown]
  - Serum ferritin decreased [Unknown]
  - Abscess [Unknown]
  - Drug ineffective [Unknown]
  - Dry skin [Unknown]
  - Rash [Unknown]
  - Product use issue [Unknown]
  - Fatigue [Unknown]
  - Drug effect incomplete [Unknown]
  - Asthma [Unknown]
  - Off label use [Unknown]
  - Constipation [Unknown]

NARRATIVE: CASE EVENT DATE: 201508
